FAERS Safety Report 6244673-X (Version None)
Quarter: 2009Q2

REPORT INFORMATION
  Report Type: 
  Country: None (occurrence: None)
  Receive Date: 20090625
  Receipt Date: 20090617
  Transmission Date: 20091009
  Serious: Yes (Hospitalization)
  Sender: FDA-Public Use
  Company Number: GB-BAYER-200923266GPV

PATIENT
  Age: 42 Year
  Sex: Female

DRUGS (4)
  1. CAMPATH [Suspect]
     Indication: IMMUNOSUPPRESSION
     Dosage: IN 100 ML NORMAL SALINE, INFUSION OVER MORE THAN 2 HR PRE-OPERATIVE
     Route: 042
  2. SODIUM CHLORIDE [Concomitant]
     Route: 042
  3. METHYLPREDNISOLONE [Concomitant]
     Indication: IMMUNOSUPPRESSION
     Route: 065
  4. PROGRAF [Concomitant]
     Indication: IMMUNOSUPPRESSION
     Route: 065

REACTIONS (3)
  - COAGULOPATHY [None]
  - HAEMOGLOBIN DECREASED [None]
  - POST PROCEDURAL HAEMORRHAGE [None]
